FAERS Safety Report 12384777 (Version 2)
Quarter: 2016Q2

REPORT INFORMATION
  Report Type: Spontaneous
  Country: HR (occurrence: HR)
  Receive Date: 20160519
  Receipt Date: 20160523
  Transmission Date: 20160815
  Serious: Yes (Other)
  Sender: FDA-Public Use
  Company Number: PHHY2016HR064897

PATIENT
  Age: 63 Year
  Sex: Male

DRUGS (2)
  1. EPA [Concomitant]
     Indication: PRODUCT USED FOR UNKNOWN INDICATION
     Route: 065
  2. VOTRIENT [Suspect]
     Active Substance: PAZOPANIB HYDROCHLORIDE
     Indication: METASTATIC RENAL CELL CARCINOMA
     Dosage: 800 MG, QD (1 H BEFORE OR 2 H AFTER THE MEAL)
     Route: 065
     Dates: start: 20150416, end: 201508

REACTIONS (7)
  - Eosinophilia [Unknown]
  - Metastases to lymph nodes [Unknown]
  - Red blood cell count decreased [Unknown]
  - Paraneoplastic syndrome [Unknown]
  - Platelet count decreased [Unknown]
  - Blood creatinine increased [Unknown]
  - Blood pressure increased [Not Recovered/Not Resolved]

NARRATIVE: CASE EVENT DATE: 201506
